FAERS Safety Report 9441730 (Version 2)
Quarter: 2013Q4

REPORT INFORMATION
  Report Type: Spontaneous
  Country: BR (occurrence: BR)
  Receive Date: 20130806
  Receipt Date: 20131217
  Transmission Date: 20140711
  Serious: Yes (Other)
  Sender: FDA-Public Use
  Company Number: BR-PFIZER INC-2012071801

PATIENT
  Age: 66 Year
  Sex: Female
  Weight: 71 kg

DRUGS (7)
  1. SUTENT [Suspect]
     Indication: RENAL CANCER
     Dosage: 25 MG, CYCLIC (2X2)
     Route: 048
     Dates: start: 20120201
  2. HYDROCHLOROTHIAZIDE [Concomitant]
     Dosage: HALF OF A TABLET OF 25 MG DAILY
  3. ENALAPRIL [Concomitant]
  4. PURAN T4 [Concomitant]
  5. AMLODIPINE [Concomitant]
     Dosage: 5 (UNSPECIFIED UNIT), AS NEEDED
  6. LYSINE [Concomitant]
     Dosage: 10 MG, UNK
  7. LISINOPRIL [Concomitant]
     Dosage: 10 MG, 1 TABLET IN THE MORNING

REACTIONS (27)
  - Blood pressure increased [Not Recovered/Not Resolved]
  - Blood pressure increased [Not Recovered/Not Resolved]
  - Fall [Unknown]
  - Patella fracture [Unknown]
  - Nausea [Recovered/Resolved]
  - Glossodynia [Not Recovered/Not Resolved]
  - Mouth injury [Not Recovered/Not Resolved]
  - Yellow skin [Not Recovered/Not Resolved]
  - Chromaturia [Not Recovered/Not Resolved]
  - Cough [Unknown]
  - Nasal congestion [Unknown]
  - Enlarged uvula [Unknown]
  - Wound [Recovered/Resolved]
  - Pain in extremity [Recovering/Resolving]
  - Fatigue [Not Recovered/Not Resolved]
  - Oral discomfort [Not Recovered/Not Resolved]
  - Ageusia [Not Recovered/Not Resolved]
  - Decreased appetite [Not Recovered/Not Resolved]
  - Wound [Not Recovered/Not Resolved]
  - Oral pain [Unknown]
  - Headache [Unknown]
  - Retching [Unknown]
  - Eyelid oedema [Not Recovered/Not Resolved]
  - Feeling abnormal [Unknown]
  - Pain [Not Recovered/Not Resolved]
  - Arthralgia [Not Recovered/Not Resolved]
  - Blood glucose increased [Recovered/Resolved]
